FAERS Safety Report 6216738-X (Version None)
Quarter: 2009Q2

REPORT INFORMATION
  Report Type: 
  Country: None (occurrence: None)
  Receive Date: 20090605
  Receipt Date: 20090521
  Transmission Date: 20091009
  Serious: Yes (Other)
  Sender: FDA-Public Use
  Company Number: PHHY2009JP16071

PATIENT
  Age: 59 Year
  Sex: Male

DRUGS (3)
  1. GLEEVEC [Suspect]
     Indication: CHRONIC MYELOID LEUKAEMIA
     Dosage: 400 MG/DAY
     Route: 048
     Dates: start: 20090420, end: 20090428
  2. GLEEVEC [Suspect]
     Dosage: 100 MG/DAY
     Route: 048
     Dates: start: 20090429
  3. TAKEPRON [Concomitant]

REACTIONS (4)
  - BLOOD POTASSIUM INCREASED [None]
  - DRUG INEFFECTIVE [None]
  - MYALGIA [None]
  - PLATELET COUNT INCREASED [None]
